FAERS Safety Report 8796573 (Version 1)
Quarter: 2012Q4

REPORT INFORMATION
  Report Type: 
  Country: US (occurrence: US)
  Receive Date: 20120919
  Receipt Date: 20120919
  Transmission Date: 20130627
  Serious: No
  Sender: FDA-Public Use
  Company Number: US-ASTRAZENECA-2012SE65171

PATIENT
  Age: 68 Year
  Sex: Male
  Weight: 77.1 kg

DRUGS (8)
  1. NEXIUM [Suspect]
     Indication: GASTROOESOPHAGEAL REFLUX DISEASE
     Route: 048
  2. AMTRODEPENE [Concomitant]
  3. LOSARTAN POTASSIUM [Concomitant]
     Indication: OEDEMA PERIPHERAL
  4. LIPITOR [Concomitant]
     Indication: ARTERIOSCLEROSIS
  5. ATENOLOL [Concomitant]
     Indication: CARDIAC DISORDER
  6. FOLIC ACID [Concomitant]
  7. CENTRUM SILVER [Concomitant]
     Indication: VITAMIN SUPPLEMENTATION
  8. EXROIC ASPIRIN [Concomitant]
     Indication: CARDIAC DISORDER

REACTIONS (5)
  - Barrett^s oesophagus [Recovered/Resolved]
  - Gait disturbance [Unknown]
  - Arthralgia [Not Recovered/Not Resolved]
  - Oedema peripheral [Not Recovered/Not Resolved]
  - Off label use [Unknown]
